FAERS Safety Report 9141489 (Version 1)
Quarter: 2013Q1

REPORT INFORMATION
  Report Type: Spontaneous
  Country: US (occurrence: US)
  Receive Date: 20130305
  Receipt Date: 20130305
  Transmission Date: 20140127
  Serious: No
  Sender: FDA-Public Use
  Company Number: US-AMGEN-USASP2013009420

PATIENT
  Age: 69 Year
  Sex: Female

DRUGS (3)
  1. ENBREL [Suspect]
     Indication: RHEUMATOID ARTHRITIS
     Dosage: 50 MG, QWK
     Dates: start: 20030112
  2. ARAVA [Concomitant]
     Dosage: 50 MG, EVERY OTHER DAY
  3. ARAVA [Concomitant]
     Dosage: 50 MG, QD

REACTIONS (9)
  - Erythema [Not Recovered/Not Resolved]
  - Dry skin [Not Recovered/Not Resolved]
  - Skin tightness [Not Recovered/Not Resolved]
  - Skin ulcer [Not Recovered/Not Resolved]
  - Scar [Not Recovered/Not Resolved]
  - Local swelling [Not Recovered/Not Resolved]
  - Nodule [Not Recovered/Not Resolved]
  - Cyst [Not Recovered/Not Resolved]
  - Sinusitis [Recovered/Resolved]
